FAERS Safety Report 20264878 (Version 1)
Quarter: 2021Q4

REPORT INFORMATION
  Report Type: Spontaneous
  Country: NL (occurrence: NL)
  Receive Date: 20211231
  Receipt Date: 20211231
  Transmission Date: 20220304
  Serious: Yes (Other)
  Sender: FDA-Public Use
  Company Number: None

PATIENT
  Age: 41 Year
  Sex: Female
  Weight: 63 kg

DRUGS (2)
  1. BISOPROLOL [Suspect]
     Active Substance: BISOPROLOL
     Indication: Postural orthostatic tachycardia syndrome
     Dosage: 1.25 MG (1 TOT 2 X DAAGS 1 STUK)
     Route: 065
     Dates: start: 20211206
  2. ACENOCOUMAROL [Concomitant]
     Active Substance: ACENOCOUMAROL
     Indication: Product used for unknown indication
     Dosage: UNK
     Route: 065

REACTIONS (6)
  - Atrial fibrillation [Not Recovered/Not Resolved]
  - Tinnitus [Recovering/Resolving]
  - Ventricular extrasystoles [Not Recovered/Not Resolved]
  - Sleep paralysis [Recovered/Resolved]
  - Hypoaesthesia [Recovering/Resolving]
  - Supraventricular tachycardia [Not Recovered/Not Resolved]

NARRATIVE: CASE EVENT DATE: 20211208
